FAERS Safety Report 4649770-8 (Version None)
Quarter: 2005Q2

REPORT INFORMATION
  Report Type: 
  Country: None (occurrence: None)
  Receive Date: 20050428
  Receipt Date: 20050421
  Transmission Date: 20051028
  Serious: Yes (Other)
  Sender: FDA-Public Use
  Company Number: 200510998GDS

PATIENT
  Age: 83 Year
  Sex: Female
  Weight: 70 kg

DRUGS (9)
  1. AVELOX [Suspect]
     Dosage: 400 MG, QD, ORAL
     Route: 048
  2. MESTINON [Concomitant]
  3. CELLCEPT [Concomitant]
  4. MEDROL [Concomitant]
  5. CORUNO [Concomitant]
  6. REDOMEX [Concomitant]
  7. CACO3 [Concomitant]
  8. D-CURE [Concomitant]
  9. FENOGAL [Concomitant]

REACTIONS (3)
  - DYSPHAGIA [None]
  - MOVEMENT DISORDER [None]
  - MYASTHENIA GRAVIS [None]
